FAERS Safety Report 5021015-9 (Version None)
Quarter: 2006Q2

REPORT INFORMATION
  Report Type: 
  Country: None (occurrence: None)
  Receive Date: 20060602
  Receipt Date: 20060516
  Transmission Date: 20061013
  Serious: Yes (Hospitalization)
  Sender: FDA-Public Use
  Company Number: 200613293BWH

PATIENT
  Sex: Male

DRUGS (1)
  1. SORAFENIB [Suspect]
     Indication: ANGIOSARCOMA
     Dosage: ORAL
     Route: 048
     Dates: start: 20051201

REACTIONS (5)
  - DIARRHOEA [None]
  - DIVERTICULITIS [None]
  - INTESTINAL PERFORATION [None]
  - PALMAR-PLANTAR ERYTHRODYSAESTHESIA SYNDROME [None]
  - RASH [None]
